FAERS Safety Report 18395304 (Version 4)
Quarter: 2020Q4

REPORT INFORMATION
  Report Type: Spontaneous
  Country: AR (occurrence: AR)
  Receive Date: 20201017
  Receipt Date: 20201122
  Transmission Date: 20210114
  Serious: Yes (Other)
  Sender: FDA-Public Use
  Company Number: AR-AMGEN-ARGSP2020167918

PATIENT
  Age: 61 Year
  Sex: Female

DRUGS (2)
  1. BLOKIUM B12 [BETAMETHASONE SODIUM PHOSPHATE;DICLOFENAC POTASSIUM;HYDRO [Concomitant]
     Dosage: UNK
  2. ENBREL [Suspect]
     Active Substance: ETANERCEPT
     Indication: RHEUMATOID ARTHRITIS
     Dosage: 50 MG, WEEKLY (1 WEEKLY DOSE)
     Route: 065
     Dates: start: 20140723

REACTIONS (5)
  - Bone pain [Unknown]
  - Pain [Unknown]
  - Malaise [Unknown]
  - Mobility decreased [Unknown]
  - Arthralgia [Unknown]
